FAERS Safety Report 6032367-5 (Version None)
Quarter: 2008Q4

REPORT INFORMATION
  Report Type: 
  Country: None (occurrence: None)
  Receive Date: 20081224
  Receipt Date: 20080912
  Transmission Date: 20090506
  Serious: No
  Sender: FDA-Public Use
  Company Number: 2008PV036692

PATIENT
  Age: 68 Year
  Sex: Male

DRUGS (5)
  1. SYMLIN [Suspect]
     Indication: TYPE 2 DIABETES MELLITUS
     Dosage: 120 MCG ;TID;SC; 60 MCG;TID;SC
     Route: 058
     Dates: start: 20080301, end: 20080601
  2. SYMLIN [Suspect]
     Indication: TYPE 2 DIABETES MELLITUS
     Dosage: 120 MCG ;TID;SC; 60 MCG;TID;SC
     Route: 058
     Dates: start: 20080601
  3. METFORMIN [Concomitant]
  4. GLIPIZIDE [Concomitant]
  5. INSULIN [Concomitant]

REACTIONS (2)
  - BLOOD GLUCOSE INCREASED [None]
  - DRUG INEFFECTIVE [None]
